FAERS Safety Report 9677856 (Version 2)
Quarter: 2013Q4

REPORT INFORMATION
  Report Type: Report from Study
  Country: CN (occurrence: CN)
  Receive Date: 20131108
  Receipt Date: 20131108
  Transmission Date: 20140711
  Serious: Yes (Hospitalization)
  Sender: FDA-Public Use
  Company Number: CN-B.I. PHARMACEUTICALS,INC./RIDGEFIELD-2013-RU-00582BP

PATIENT
  Age: 64 Year
  Sex: Male
  Weight: 50 kg

DRUGS (1)
  1. BI 1744+TIOTROPIUM [Suspect]
     Indication: CHRONIC OBSTRUCTIVE PULMONARY DISEASE
     Dosage: 2.5 MCG TIOTOPRIUM AND 5.0 MCG OLODATEROL
     Dates: start: 20120824

REACTIONS (1)
  - Nephritis [Recovered/Resolved]
